FAERS Safety Report 8076808-0 (Version None)
Quarter: 2011Q4

REPORT INFORMATION
  Report Type: 
  Country: None (occurrence: None)
  Receive Date: 20111221
  Receipt Date: 20101220
  Transmission Date: 20120403
  Serious: Yes (Other)
  Sender: FDA-Public Use
  Company Number: PHHY2009US66549

PATIENT
  Age: 64 Year
  Sex: Female

DRUGS (7)
  1. METOPROLOL TARTRATE [Concomitant]
  2. NOVOLOG [Concomitant]
  3. VERAPAMIL [Concomitant]
  4. ATACAND [Concomitant]
  5. EXJADE [Suspect]
     Indication: IRON OVERLOAD
     Dosage: 250 MG, QD, ORAL ; 1250 MG, QD, ORAL
     Route: 048
     Dates: start: 20090718
  6. EXJADE [Suspect]
     Indication: IRON OVERLOAD
     Dosage: 250 MG, QD, ORAL ; 1250 MG, QD, ORAL
     Route: 048
     Dates: start: 20090707
  7. FUROSEMIDE [Concomitant]

REACTIONS (2)
  - DIARRHOEA [None]
  - MELAENA [None]
